FAERS Safety Report 20725224 (Version 3)
Quarter: 2022Q2

REPORT INFORMATION
  Report Type: Spontaneous
  Country: US (occurrence: US)
  Receive Date: 20220419
  Receipt Date: 20220531
  Transmission Date: 20220720
  Serious: No
  Sender: FDA-Public Use
  Company Number: US-BIOGEN-2022BI01097174

PATIENT
  Sex: Female

DRUGS (8)
  1. VUMERITY [Suspect]
     Active Substance: DIROXIMEL FUMARATE
     Indication: Multiple sclerosis
     Route: 048
     Dates: start: 20220211
  2. VUMERITY [Suspect]
     Active Substance: DIROXIMEL FUMARATE
     Dosage: THEN 1 CAPSULE IN THE MORNING AND 2 AT NIGHT WHICH DIFFERS FROM PRESCRIPTION
     Route: 048
     Dates: start: 202202
  3. VUMERITY [Suspect]
     Active Substance: DIROXIMEL FUMARATE
     Route: 065
     Dates: start: 20220210
  4. VUMERITY [Suspect]
     Active Substance: DIROXIMEL FUMARATE
     Route: 065
     Dates: start: 20220214, end: 20220220
  5. VUMERITY [Suspect]
     Active Substance: DIROXIMEL FUMARATE
     Route: 065
     Dates: start: 20220221
  6. VUMERITY [Suspect]
     Active Substance: DIROXIMEL FUMARATE
     Route: 048
     Dates: start: 202203
  7. VUMERITY [Suspect]
     Active Substance: DIROXIMEL FUMARATE
     Route: 048
     Dates: start: 20220214
  8. BOTOX [Concomitant]
     Active Substance: ONABOTULINUMTOXINA
     Route: 065

REACTIONS (17)
  - Product dose omission issue [Unknown]
  - Asthenia [Not Recovered/Not Resolved]
  - Headache [Not Recovered/Not Resolved]
  - Ear swelling [Not Recovered/Not Resolved]
  - Fatigue [Unknown]
  - Migraine [Unknown]
  - Drug intolerance [Unknown]
  - Somnolence [Unknown]
  - Abdominal distension [Unknown]
  - Flatulence [Unknown]
  - Rhinitis [Unknown]
  - Ear infection [Unknown]
  - Multiple sclerosis [Unknown]
  - Diarrhoea [Not Recovered/Not Resolved]
  - Rhinorrhoea [Unknown]
  - Abdominal pain upper [Unknown]
  - Flushing [Unknown]

NARRATIVE: CASE EVENT DATE: 20220101
